FAERS Safety Report 23081438 (Version 3)
Quarter: 2023Q4

REPORT INFORMATION
  Report Type: Spontaneous
  Country: JP (occurrence: JP)
  Receive Date: 20231018
  Receipt Date: 20231221
  Transmission Date: 20240109
  Serious: Yes (Death)
  Sender: FDA-Public Use
  Company Number: JP-GSKJP-JP2023JPN143588AA

PATIENT

DRUGS (8)
  1. DAPRODUSTAT [Suspect]
     Active Substance: DAPRODUSTAT
     Indication: Nephrogenic anaemia
     Dosage: 2 MG, 1D
     Route: 048
     Dates: start: 20210928, end: 20220119
  2. DAPRODUSTAT [Suspect]
     Active Substance: DAPRODUSTAT
     Dosage: 1 MG, 1D
     Route: 048
     Dates: start: 20220120, end: 20221009
  3. DAPRODUSTAT [Suspect]
     Active Substance: DAPRODUSTAT
     Dosage: 2 MG
     Route: 048
     Dates: start: 20221010, end: 2023
  4. HYDROCHLOROTHIAZIDE\VALSARTAN [Concomitant]
     Active Substance: HYDROCHLOROTHIAZIDE\VALSARTAN
     Indication: Hypertension
     Dosage: 1 DF, 1D, AFTER BREAKFAST
     Route: 048
  5. DISOPYRAMIDE [Concomitant]
     Active Substance: DISOPYRAMIDE
     Dosage: 100 MG, 1D, AFTER BREAKFAST
  6. ZINC [Concomitant]
     Active Substance: PYRITHIONE ZINC\ZINC\ZINC CHLORIDE
     Dosage: 25 MG, 1D, AFTER BREAKFAST
  7. NICERGOLINE [Concomitant]
     Active Substance: NICERGOLINE
     Dosage: 5 MG, BID, AFTER BREAKFAST AND DINNER
  8. CILOSTAZOL [Concomitant]
     Active Substance: CILOSTAZOL
     Dosage: 100 MG, BID, AFTER BREAKFAST AND DINNER

REACTIONS (1)
  - Marasmus [Fatal]

NARRATIVE: CASE EVENT DATE: 20230928
